FAERS Safety Report 25701437 (Version 1)
Quarter: 2025Q3

REPORT INFORMATION
  Report Type: Spontaneous
  Country: US (occurrence: None)
  Receive Date: 20250819
  Receipt Date: 20250819
  Transmission Date: 20251021
  Serious: Yes (Other)
  Sender: FDA-CTU
  Company Number: None

PATIENT
  Sex: Female

DRUGS (9)
  1. ORENCIA [Suspect]
     Active Substance: ABATACEPT
     Indication: Rheumatoid arthritis
     Dates: start: 20180703
  2. ORENCIA [Suspect]
     Active Substance: ABATACEPT
     Indication: Myopathy
  3. ASPIRIN CHW 81MG [Concomitant]
  4. ATORVASTATIN [Concomitant]
     Active Substance: ATORVASTATIN
  5. BUPRENORPHIN POW HCL [Concomitant]
  6. DORZOLAMI DE SOL 2% OP [Concomitant]
  7. LATANOPROST SOL 0.005% [Concomitant]
  8. METHOTREXATE INJ 1 GM/40ML [Concomitant]
  9. PANTOPRAZOLE SODIUM [Concomitant]
     Active Substance: PANTOPRAZOLE SODIUM

REACTIONS (1)
  - Breast cancer [None]
